FAERS Safety Report 8182221-8 (Version None)
Quarter: 2012Q1

REPORT INFORMATION
  Report Type: 
  Country: None (occurrence: None)
  Receive Date: 20120302
  Receipt Date: 20120223
  Transmission Date: 20120608
  Serious: Yes (Hospitalization, Other)
  Sender: FDA-Public Use
  Company Number: PHHY2012GB015552

PATIENT
  Age: 61 Year
  Sex: Female
  Weight: 47.5 kg

DRUGS (9)
  1. MEBEVERINE HYDROCHLORIDE [Concomitant]
  2. PAROXETINE [Suspect]
     Indication: ANXIETY
  3. NITROGLYCERIN [Concomitant]
  4. DILTIAZEM HCL [Concomitant]
  5. GABAPENTIN [Concomitant]
  6. PAROXETINE [Suspect]
     Indication: DEPRESSION
     Dosage: 20 MG, ONCE/SINGLE
     Route: 048
     Dates: start: 20120121, end: 20120121
  7. ACIDEX [Concomitant]
  8. OMEPRAZOLE [Concomitant]
  9. ALBUTEROL [Concomitant]

REACTIONS (5)
  - CHEST PAIN [None]
  - HYPONATRAEMIA [None]
  - CONTUSION [None]
  - THROMBOCYTOPENIA [None]
  - BURNING SENSATION [None]
